FAERS Safety Report 12832796 (Version 1)
Quarter: 2016Q4

REPORT INFORMATION
  Report Type: Spontaneous
  Country: IL (occurrence: IL)
  Receive Date: 20161010
  Receipt Date: 20161010
  Transmission Date: 20170207
  Serious: Yes (Other)
  Sender: FDA-Public Use
  Company Number: IL-GLAXOSMITHKLINE-IL2016GSK147824

PATIENT
  Age: 38 Year
  Sex: Male

DRUGS (3)
  1. CARBIDOPA + L-DOPA [Suspect]
     Active Substance: CARBIDOPA\LEVODOPA
  2. ROPINIROLE. [Suspect]
     Active Substance: ROPINIROLE
     Indication: PARKINSON^S DISEASE
     Dosage: 12 MG, QD
  3. ROPINIROLE. [Suspect]
     Active Substance: ROPINIROLE
     Dosage: 20 UNK, UNK

REACTIONS (6)
  - Suicidal ideation [Unknown]
  - Treatment noncompliance [Unknown]
  - Dysphoria [Unknown]
  - Hypersexuality [Recovering/Resolving]
  - Dyskinesia [Unknown]
  - Weight decreased [Unknown]
